FAERS Safety Report 16345043 (Version 1)
Quarter: 2019Q2

REPORT INFORMATION
  Report Type: Spontaneous
  Country: US (occurrence: US)
  Receive Date: 20190523
  Receipt Date: 20190523
  Transmission Date: 20190711
  Serious: No
  Sender: FDA-Public Use
  Company Number: US-CUTISPHARMA, INC.-2067340

PATIENT
  Age: 66 Year
  Sex: Female

DRUGS (9)
  1. L-GLUTAMINE [Concomitant]
  2. FIRVANQ [Suspect]
     Active Substance: VANCOMYCIN HYDROCHLORIDE
     Indication: CLOSTRIDIUM DIFFICILE INFECTION
     Route: 048
     Dates: start: 20190218
  3. PULMICORT FLEXHALER [Concomitant]
     Active Substance: BUDESONIDE
  4. LOSARTAN. [Concomitant]
     Active Substance: LOSARTAN
  5. FISH OIL [Concomitant]
     Active Substance: FISH OIL
  6. OYSTER SHELL CALCIUM WITH VITAMIN D [Concomitant]
     Active Substance: CALCIUM\CHOLECALCIFEROL
  7. FOUR-STAR PROBIOTIC [Concomitant]
  8. BACLOFEN. [Concomitant]
     Active Substance: BACLOFEN
  9. DOCTOR SUPER LUTEIN [Concomitant]
     Active Substance: LUTEIN

REACTIONS (2)
  - Nausea [Unknown]
  - Abdominal pain [Recovering/Resolving]

NARRATIVE: CASE EVENT DATE: 20190218
